FAERS Safety Report 9253080 (Version 1)
Quarter: 2013Q2

REPORT INFORMATION
  Report Type: Spontaneous
  Country: US (occurrence: US)
  Receive Date: 20130424
  Receipt Date: 20130424
  Transmission Date: 20140414
  Serious: No
  Sender: FDA-Public Use
  Company Number: US-PFIZER INC-2013123916

PATIENT
  Sex: Male

DRUGS (2)
  1. NORVASC [Suspect]
     Dosage: 2.5 MG, DAILY
  2. TORSEMIDE [Suspect]
     Indication: DIURETIC THERAPY
     Dosage: 80 MG, DAILY

REACTIONS (1)
  - Local swelling [Unknown]
